FAERS Safety Report 14612385 (Version 4)
Quarter: 2019Q1

REPORT INFORMATION
  Report Type: Spontaneous
  Country: FR (occurrence: FR)
  Receive Date: 20180308
  Receipt Date: 20190303
  Transmission Date: 20190417
  Serious: Yes (Death, Other)
  Sender: FDA-Public Use
  Company Number: FR-APOTEX-2018AP007477

PATIENT
  Age: 37 Year
  Sex: Female

DRUGS (18)
  1. HYDROXYZINE [Suspect]
     Active Substance: HYDROXYZINE HYDROCHLORIDE
     Indication: SUICIDE ATTEMPT
     Dosage: 100 MG, TID,(THREE TABLETS/DAY)
     Route: 065
  2. HYDROXYZINE [Suspect]
     Active Substance: HYDROXYZINE HYDROCHLORIDE
     Indication: PRODUCT USED FOR UNKNOWN INDICATION
     Dosage: 3 DF, QD
     Route: 065
  3. SUBUTEX [Suspect]
     Active Substance: BUPRENORPHINE HYDROCHLORIDE
     Dosage: UNK,(6MG PER DAY (INTERRUPTED))
     Route: 065
  4. MEPRONIZINE [Concomitant]
     Active Substance: ACEPROMETAZINE MALEATE\MEPROBAMATE
     Dosage: 2 DF, QD
     Route: 065
  5. DEPAKENE [Concomitant]
     Active Substance: VALPROIC ACID
     Dosage: 3 DF, UNKNOWN
  6. PHENERGAN [Suspect]
     Active Substance: PROMETHAZINE HYDROCHLORIDE
     Indication: PRODUCT USED FOR UNKNOWN INDICATION
     Dosage: UNK,25 MG TWO TABLETS/DAY, PRESCRIPTION FOR 1 MONTH
     Route: 065
  7. SUBUTEX [Suspect]
     Active Substance: BUPRENORPHINE HYDROCHLORIDE
     Indication: DRUG DEPENDENCE
     Dosage: 8 MG, QD
     Route: 065
  8. PHENERGAN [Suspect]
     Active Substance: PROMETHAZINE HYDROCHLORIDE
     Dosage: 2 DF, QD
     Route: 065
  9. BROMAZEPAM [Concomitant]
     Active Substance: BROMAZEPAM
     Dosage: 3 DF, PER DAY (THREE TABLETS/DAY)
     Route: 065
  10. DEPAKENE [Concomitant]
     Active Substance: VALPROIC ACID
     Indication: SUICIDE ATTEMPT
     Dosage: 500 MG, TID
     Route: 065
  11. PAXIL [Suspect]
     Active Substance: PAROXETINE HYDROCHLORIDE
     Indication: ANTIDEPRESSANT THERAPY
     Dosage: UNK
     Route: 065
  12. PHENERGAN [Suspect]
     Active Substance: PROMETHAZINE HYDROCHLORIDE
     Dosage: 25 MG, BID
     Route: 065
  13. SUBUTEX [Suspect]
     Active Substance: BUPRENORPHINE HYDROCHLORIDE
     Indication: SUICIDE ATTEMPT
     Dosage: UNK,(6MG, PER DAY (RE-INITIATED)
     Route: 065
  14. SUBUTEX [Suspect]
     Active Substance: BUPRENORPHINE HYDROCHLORIDE
     Dosage: 8 MG, QD
     Route: 065
  15. BROMAZEPAM [Concomitant]
     Active Substance: BROMAZEPAM
     Indication: PRODUCT USED FOR UNKNOWN INDICATION
     Dosage: THREE TABLETS/DAY
     Route: 065
  16. MEPRONIZINE [Concomitant]
     Active Substance: ACEPROMETAZINE MALEATE\MEPROBAMATE
     Indication: SUICIDE ATTEMPT
     Dosage: 2 DF, QD (TWO TABLETS/DAY)
     Route: 065
  17. VALPROATE SODIUM ELMED EISAI [Concomitant]
     Indication: PRODUCT USED FOR UNKNOWN INDICATION
     Dosage: UNK,(500 MG, THREE TABLETS/DAY)
     Route: 065
  18. MEPRONIZINE [Concomitant]
     Active Substance: ACEPROMETAZINE MALEATE\MEPROBAMATE
     Indication: PRODUCT USED FOR UNKNOWN INDICATION
     Dosage: UNK,(TWO TABLETS/DAY)
     Route: 065

REACTIONS (13)
  - Toxicity to various agents [Fatal]
  - Drug abuse [Unknown]
  - Intentional overdose [Fatal]
  - Pelvic pain [Unknown]
  - Drug screen positive [Recovered/Resolved]
  - Altered state of consciousness [Fatal]
  - Intentional self-injury [Fatal]
  - Respiratory depression [Fatal]
  - Condition aggravated [Unknown]
  - Asphyxia [Fatal]
  - Therapy cessation [Recovered/Resolved]
  - Substance dependence [Unknown]
  - Completed suicide [Fatal]
